FAERS Safety Report 19679641 (Version 1)
Quarter: 2021Q3

REPORT INFORMATION
  Report Type: Spontaneous
  Country: CN (occurrence: CN)
  Receive Date: 20210810
  Receipt Date: 20210810
  Transmission Date: 20211014
  Serious: Yes (Hospitalization, Other)
  Sender: FDA-Public Use
  Company Number: CN-BAYER-2021-187756

PATIENT
  Age: 60 Year
  Sex: Male
  Weight: 73 kg

DRUGS (4)
  1. AVELOX [Suspect]
     Active Substance: MOXIFLOXACIN HYDROCHLORIDE
     Indication: PNEUMONIA
  2. BIFID TRIPLE VIABLE [Concomitant]
     Dosage: 2 DF, BID
     Route: 048
     Dates: start: 20210709
  3. BACILLUS LICHENIFORMIS CAPSULE,LIVE [Concomitant]
     Dosage: 2 DF, TID
     Route: 048
     Dates: start: 20210709
  4. AVELOX [Suspect]
     Active Substance: MOXIFLOXACIN HYDROCHLORIDE
     Indication: RESPIRATORY TRACT INFECTION
     Dosage: 250 ML, QD
     Route: 041
     Dates: start: 20210709, end: 20210712

REACTIONS (8)
  - Hallucination, visual [Recovered/Resolved]
  - Postural tremor [Recovered/Resolved]
  - Metabolic encephalopathy [Recovered/Resolved]
  - Muscle spasms [Recovering/Resolving]
  - Cerebral ischaemia [None]
  - Delirium [Recovered/Resolved]
  - Toxic encephalopathy [Recovered/Resolved]
  - Hyperexplexia [Recovered/Resolved]

NARRATIVE: CASE EVENT DATE: 20210710
